FAERS Safety Report 8780383 (Version 1)
Quarter: 2012Q4

REPORT INFORMATION
  Report Type: Spontaneous
  Country: US (occurrence: None)
  Receive Date: 20120830
  Receipt Date: 20120830
  Transmission Date: 20130627
  Serious: Yes (Other)
  Sender: FDA-Public Use
  Company Number: US-2012-11319

PATIENT
  Age: 63 Year
  Sex: Female

DRUGS (4)
  1. BUSULFEX [Suspect]
  2. ARA-C [Concomitant]
  3. IDARUBICIN [Concomitant]
  4. ETOPOSIDE [Concomitant]

REACTIONS (1)
  - Bile duct obstruction [None]
